APPROVED DRUG PRODUCT: GLUCOTROL XL
Active Ingredient: GLIPIZIDE
Strength: 2.5MG
Dosage Form/Route: TABLET, EXTENDED RELEASE;ORAL
Application: N020329 | Product #003
Applicant: PFIZER INC
Approved: Aug 10, 1999 | RLD: Yes | RS: No | Type: DISCN